FAERS Safety Report 4717056-9 (Version None)
Quarter: 2005Q3

REPORT INFORMATION
  Report Type: 
  Country: None (occurrence: None)
  Receive Date: 20050715
  Receipt Date: 20050331
  Transmission Date: 20060218
  Serious: Yes (Hospitalization)
  Sender: FDA-Public Use
  Company Number: 2005FR-00111

PATIENT
  Age: 92 Year
  Sex: Female
  Weight: 40 kg

DRUGS (2)
  1. ASPIRIN [Suspect]
     Indication: MYOCARDIAL ISCHAEMIA
     Dosage: 75MG, ORAL
     Route: 048
     Dates: end: 20041215
  2. DILTIAZEM HCL [Concomitant]

REACTIONS (4)
  - ANGINA PECTORIS [None]
  - CONFUSIONAL STATE [None]
  - HAEMOGLOBIN DECREASED [None]
  - MELAENA [None]
